FAERS Safety Report 7132566-5 (Version None)
Quarter: 2010Q4

REPORT INFORMATION
  Report Type: 
  Country: None (occurrence: None)
  Receive Date: 20101130
  Receipt Date: 20101130
  Transmission Date: 20110411
  Serious: Yes (Hospitalization)
  Sender: FDA-Public Use
  Company Number: None

PATIENT
  Sex: Female
  Weight: 57 kg

DRUGS (2)
  1. CISPLATIN [Suspect]
     Dosage: 125 MG
  2. ETOPOSIDE [Suspect]
     Dosage: 465 MG

REACTIONS (4)
  - FEBRILE NEUTROPENIA [None]
  - PHARYNGITIS [None]
  - RADIATION INJURY [None]
  - RENAL FAILURE [None]
